FAERS Safety Report 25368842 (Version 1)
Quarter: 2025Q2

REPORT INFORMATION
  Report Type: Report from Study
  Country: CZ (occurrence: CZ)
  Receive Date: 20250528
  Receipt Date: 20250528
  Transmission Date: 20250717
  Serious: Yes (Other)
  Sender: BAYER HEALTHCARE PHARMACEUTICALS INC.
  Company Number: CZ-BAYER-2025A071048

PATIENT
  Age: 49 Year
  Sex: Female
  Weight: 72 kg

DRUGS (2)
  1. MIRENA [Suspect]
     Active Substance: LEVONORGESTREL
     Indication: Contraception
     Dosage: 20?G/DAY
     Route: 015
     Dates: start: 20241127, end: 20241127
  2. ELIQUIS [Concomitant]
     Active Substance: APIXABAN

REACTIONS (3)
  - Device breakage [None]
  - Complication of device insertion [None]
  - Device use issue [None]

NARRATIVE: CASE EVENT DATE: 20241127
